FAERS Safety Report 24970983 (Version 2)
Quarter: 2025Q1

REPORT INFORMATION
  Report Type: Spontaneous
  Country: IT (occurrence: IT)
  Receive Date: 20250214
  Receipt Date: 20250225
  Transmission Date: 20250409
  Serious: Yes (Death, Other)
  Sender: VERITY PHARMACEUTICALS INC.
  Company Number: IT-VER-202500002

PATIENT
  Age: 64 Year
  Sex: Female

DRUGS (4)
  1. TRIPTORELIN [Suspect]
     Active Substance: TRIPTORELIN
     Indication: Salivary gland cancer
     Route: 065
     Dates: start: 202110
  2. TRIPTORELIN [Suspect]
     Active Substance: TRIPTORELIN
     Indication: Off label use
     Route: 065
     Dates: start: 202110
  3. BICALUTAMIDE [Suspect]
     Active Substance: BICALUTAMIDE
     Indication: Salivary gland cancer
     Route: 065
     Dates: start: 202110
  4. NERATINIB [Concomitant]
     Active Substance: NERATINIB
     Indication: Product used for unknown indication
     Route: 065
     Dates: start: 2020

REACTIONS (3)
  - Off label use [Unknown]
  - Death [Fatal]
  - Malignant neoplasm progression [Unknown]
